FAERS Safety Report 21282921 (Version 3)
Quarter: 2023Q1

REPORT INFORMATION
  Report Type: Report from Study
  Country: US (occurrence: US)
  Receive Date: 20220901
  Receipt Date: 20230206
  Transmission Date: 20230417
  Serious: Yes (Hospitalization, Other)
  Sender: FDA-Public Use
  Company Number: US-TAKEDA-US202034378

PATIENT
  Sex: Female

DRUGS (2)
  1. HUMAN IMMUNOGLOBULIN G [Suspect]
     Active Substance: HUMAN IMMUNOGLOBULIN G
     Indication: Primary immunodeficiency syndrome
     Dosage: UNK
     Route: 042
  2. IRON [Concomitant]
     Active Substance: IRON
     Dosage: UNK

REACTIONS (11)
  - Hip fracture [Unknown]
  - Autoimmune disorder [Unknown]
  - Ear infection [Unknown]
  - Limb injury [Unknown]
  - Fall [Unknown]
  - COVID-19 [Unknown]
  - Haematoma [Unknown]
  - Pain [Unknown]
  - Malaise [Unknown]
  - Muscle strain [Unknown]
  - Inappropriate schedule of product administration [Unknown]
